FAERS Safety Report 16061205 (Version 1)
Quarter: 2019Q1

REPORT INFORMATION
  Report Type: Spontaneous
  Country: US (occurrence: US)
  Receive Date: 20190312
  Receipt Date: 20190312
  Transmission Date: 20190418
  Serious: No
  Sender: FDA-Public Use
  Company Number: US-ROCHE-2194637

PATIENT
  Sex: Female
  Weight: 80.2 kg

DRUGS (1)
  1. AVASTIN [Suspect]
     Active Substance: BEVACIZUMAB
     Indication: COLORECTAL CANCER
     Dosage: 5MG/5KG
     Route: 042
     Dates: start: 201610

REACTIONS (1)
  - Proteinuria [Recovering/Resolving]
